FAERS Safety Report 7779895-X (Version None)
Quarter: 2011Q3

REPORT INFORMATION
  Report Type: 
  Country: None (occurrence: None)
  Receive Date: 20110927
  Receipt Date: 20110718
  Transmission Date: 20111222
  Serious: No
  Sender: FDA-Public Use
  Company Number: US-MYLANLABS-2011S1015077

PATIENT
  Age: 71 Year
  Sex: Female

DRUGS (2)
  1. NIFEDIPINE [Suspect]
     Indication: BLOOD PRESSURE
     Route: 048
     Dates: start: 20110701, end: 20110701
  2. RANITIDINE [Concomitant]

REACTIONS (4)
  - DYSARTHRIA [None]
  - ABDOMINAL DISCOMFORT [None]
  - TINNITUS [None]
  - HEADACHE [None]
